FAERS Safety Report 7295533-7 (Version None)
Quarter: 2011Q1

REPORT INFORMATION
  Report Type: 
  Country: None (occurrence: None)
  Receive Date: 20110216
  Receipt Date: 20101124
  Transmission Date: 20110831
  Serious: No
  Sender: FDA-Public Use
  Company Number: US-ABBOTT-10P-163-0687624-00

PATIENT
  Sex: Male
  Weight: 83.536 kg

DRUGS (5)
  1. GLIMEPIRIDE [Concomitant]
     Indication: DIABETES MELLITUS
  2. AVAPRO [Concomitant]
     Indication: BLOOD PRESSURE
     Dosage: UNKNOWN
  3. LEVOTHYROXINE SODIUM [Concomitant]
     Indication: HYPOTHYROIDISM
     Dosage: UNKNOWN
  4. SIMCOR [Suspect]
     Indication: BLOOD CHOLESTEROL
     Dates: start: 20101120
  5. METFORMIN HCL [Concomitant]
     Indication: DIABETES MELLITUS

REACTIONS (1)
  - BLOOD GLUCOSE INCREASED [None]
